FAERS Safety Report 20077854 (Version 1)
Quarter: 2021Q4

REPORT INFORMATION
  Report Type: Spontaneous
  Country: DE (occurrence: DE)
  Receive Date: 20211116
  Receipt Date: 20211116
  Transmission Date: 20220303
  Serious: Yes (Hospitalization)
  Sender: FDA-Public Use
  Company Number: DE-ADRED-07252-01

PATIENT
  Age: 41 Year
  Sex: Female

DRUGS (5)
  1. OLANZAPINE [Suspect]
     Active Substance: OLANZAPINE
     Indication: Product used for unknown indication
     Dosage: 20 MG, 0-0-0-1, TABLETS
     Route: 048
  2. OLANZAPINE [Suspect]
     Active Substance: OLANZAPINE
     Indication: Product used for unknown indication
     Dosage: 5 MG, 0-0-0-1, SCHMELZTABLETTEN
     Route: 060
  3. ZOPICLONE [Concomitant]
     Active Substance: ZOPICLONE
     Dosage: 7.5 MG, BEI BEDARF, TABLETTEN
     Route: 048
  4. QUETIAPINE [Concomitant]
     Active Substance: QUETIAPINE
     Dosage: 50 MG, BEI BEDARF, RETARD-TABLETTEN
     Route: 048
  5. BUPROPION [Concomitant]
     Active Substance: BUPROPION
     Dosage: 150 MG, 0-0-1-0, RETARD-TABLETTEN
     Route: 048

REACTIONS (5)
  - Bipolar disorder [Unknown]
  - Nausea [Unknown]
  - Vertigo [Unknown]
  - Dizziness [Unknown]
  - Product prescribing error [Unknown]
